FAERS Safety Report 8934339 (Version 1)
Quarter: 2012Q4

REPORT INFORMATION
  Report Type: 
  Country: US (occurrence: US)
  Receive Date: 20121129
  Receipt Date: 20121129
  Transmission Date: 20130627
  Serious: No
  Sender: FDA-Public Use
  Company Number: US-PFIZER INC-2012297675

PATIENT
  Age: 53 Year
  Sex: Female
  Weight: 79.37 kg

DRUGS (2)
  1. HALCION [Suspect]
     Indication: SLEEP DIFFICULT
     Dosage: 25 mg, daily
     Route: 048
     Dates: end: 20121125
  2. OXYCODONE [Concomitant]
     Indication: BACK PAIN
     Dosage: UNK, 2x/week

REACTIONS (5)
  - Suspected counterfeit product [Unknown]
  - Product packaging issue [Unknown]
  - Headache [Not Recovered/Not Resolved]
  - Insomnia [Not Recovered/Not Resolved]
  - Amnesia [Not Recovered/Not Resolved]
